FAERS Safety Report 12993938 (Version 1)
Quarter: 2016Q4

REPORT INFORMATION
  Report Type: Spontaneous
  Country: AU (occurrence: None)
  Receive Date: 20161129
  Receipt Date: 20161129
  Transmission Date: 20170207
  Serious: Yes (Hospitalization, Other)
  Sender: FDA-Public Use
  Company Number: A201606899

PATIENT
  Age: 31 Year
  Sex: Male

DRUGS (1)
  1. SOLIRIS [Suspect]
     Active Substance: ECULIZUMAB
     Indication: HAEMOLYTIC URAEMIC SYNDROME
     Route: 042
     Dates: start: 20160329

REACTIONS (6)
  - Proteinuria [None]
  - Haemolysis [None]
  - Infection [None]
  - Blood lactate dehydrogenase increased [None]
  - Platelet count decreased [None]
  - Drug ineffective [None]
